FAERS Safety Report 5875302-2 (Version None)
Quarter: 2008Q3

REPORT INFORMATION
  Report Type: 
  Country: None (occurrence: None)
  Receive Date: 20080909
  Receipt Date: 20080902
  Transmission Date: 20090109
  Serious: Yes (Other)
  Sender: FDA-Public Use
  Company Number: IT-JNJCH-2008022711

PATIENT
  Sex: Female

DRUGS (2)
  1. REACTINE [Suspect]
     Indication: DRUG USE FOR UNKNOWN INDICATION
     Dosage: TEXT:1 TABLET ONCE
     Route: 048
     Dates: start: 20080528, end: 20080528
  2. RINOGUTT [Concomitant]
     Indication: DRUG USE FOR UNKNOWN INDICATION
     Dosage: TEXT:1 UNIT ONCE
     Route: 045
     Dates: start: 20080528, end: 20080528

REACTIONS (2)
  - CHEST PAIN [None]
  - TACHYCARDIA [None]
